FAERS Safety Report 20862899 (Version 1)
Quarter: 2022Q2

REPORT INFORMATION
  Report Type: Spontaneous
  Country: US (occurrence: None)
  Receive Date: 20220523
  Receipt Date: 20220523
  Transmission Date: 20220721
  Serious: Yes (Hospitalization)
  Sender: FDA-Public Use
  Company Number: None

PATIENT
  Age: 71 Year
  Sex: Female

DRUGS (1)
  1. CEFEPIME HYDROCHLORIDE [Suspect]
     Active Substance: CEFEPIME HYDROCHLORIDE
     Dosage: FREQUENCY : TWICE A DAY;?
     Route: 042
     Dates: start: 20220205, end: 20220212

REACTIONS (4)
  - Confusional state [None]
  - Delirium [None]
  - Blood creatinine increased [None]
  - Depressed level of consciousness [None]

NARRATIVE: CASE EVENT DATE: 20220215
